FAERS Safety Report 22368638 (Version 4)
Quarter: 2023Q2

REPORT INFORMATION
  Report Type: Spontaneous
  Country: US (occurrence: US)
  Receive Date: 20230525
  Receipt Date: 20230621
  Transmission Date: 20230722
  Serious: No
  Sender: FDA-Public Use
  Company Number: US-PFIZER INC-202300200171

PATIENT
  Age: 26 Year
  Sex: Male
  Weight: 58.957 kg

DRUGS (1)
  1. CIBINQO [Suspect]
     Active Substance: ABROCITINIB
     Indication: Eczema
     Dosage: 100 MG, DAILY
     Route: 048
     Dates: start: 20230515

REACTIONS (5)
  - Therapeutic product effect incomplete [Unknown]
  - Rash pruritic [Unknown]
  - Pruritus [Unknown]
  - Acne [Unknown]
  - Drug eruption [Not Recovered/Not Resolved]

NARRATIVE: CASE EVENT DATE: 20230522
